FAERS Safety Report 24900387 (Version 1)
Quarter: 2025Q1

REPORT INFORMATION
  Report Type: Spontaneous
  Country: US (occurrence: None)
  Receive Date: 20250128
  Receipt Date: 20250128
  Transmission Date: 20250409
  Serious: Yes (Hospitalization)
  Sender: FDA-CTU
  Company Number: None

PATIENT
  Age: 76 Year
  Sex: Male

DRUGS (1)
  1. VANCOMYCIN HYDROCHLORIDE [Suspect]
     Active Substance: VANCOMYCIN HYDROCHLORIDE
     Indication: Infection
     Route: 042
     Dates: start: 20250111, end: 20250111

REACTIONS (9)
  - Cough [None]
  - Erythema multiforme [None]
  - Hypotension [None]
  - Tachyarrhythmia [None]
  - Infusion related reaction [None]
  - Blood pressure systolic decreased [None]
  - Sinus tachycardia [None]
  - Supraventricular extrasystoles [None]
  - Chills [None]

NARRATIVE: CASE EVENT DATE: 20250111
